FAERS Safety Report 9170643 (Version 2)
Quarter: 2013Q2

REPORT INFORMATION
  Report Type: Report from Study
  Country: CA (occurrence: CA)
  Receive Date: 20130319
  Receipt Date: 20130412
  Transmission Date: 20140414
  Serious: Yes (Hospitalization)
  Sender: FDA-Public Use
  Company Number: CA-JNJFOC-20130306163

PATIENT
  Sex: Male
  Weight: 90.4 kg

DRUGS (8)
  1. REMICADE [Suspect]
     Indication: CROHN^S DISEASE
     Route: 042
     Dates: start: 20100118
  2. VENLAFAXINE [Concomitant]
     Route: 065
  3. TYLENOL [Concomitant]
     Route: 065
  4. AMITRIPTYLINE [Concomitant]
     Route: 065
  5. METOPROLOL [Concomitant]
     Route: 065
  6. BACLOFEN [Concomitant]
     Route: 065
  7. TRAMACET [Concomitant]
     Route: 065
  8. CELEXA [Concomitant]
     Route: 065

REACTIONS (1)
  - Ankylosing spondylitis [Unknown]
